FAERS Safety Report 24454526 (Version 2)
Quarter: 2024Q4

REPORT INFORMATION
  Report Type: Report from Study
  Country: US (occurrence: US)
  Receive Date: 20241017
  Receipt Date: 20241018
  Transmission Date: 20250114
  Serious: No
  Sender: ROCHE
  Company Number: US-ROCHE-3466314

PATIENT
  Age: 64 Year
  Sex: Female

DRUGS (1)
  1. RITUXAN [Suspect]
     Active Substance: RITUXIMAB
     Indication: Rheumatoid arthritis
     Dosage: VIAL, INFUSE 1000 MILLIGRAMS INTRAVENOUSLY ON DAY(S) 1 AND ON DAY(S) 15 EVERY 6 MONTH(S)
     Route: 041

REACTIONS (2)
  - No adverse event [Unknown]
  - Intercepted product prescribing error [Unknown]
